FAERS Safety Report 10046359 (Version 2)
Quarter: 2014Q2

REPORT INFORMATION
  Report Type: Spontaneous
  Country: US (occurrence: US)
  Receive Date: 20140331
  Receipt Date: 20140423
  Transmission Date: 20141212
  Serious: No
  Sender: FDA-Public Use
  Company Number: US-BIOGENIDEC-2014BI027398

PATIENT
  Age: 36 Year
  Sex: Female
  Weight: 94 kg

DRUGS (7)
  1. TECFIDERA [Suspect]
     Indication: MULTIPLE SCLEROSIS
     Route: 048
  2. TECFIDERA [Suspect]
     Indication: MULTIPLE SCLEROSIS
     Route: 048
  3. HYDROCHLOROT [Concomitant]
     Route: 048
  4. PERCOCET [Concomitant]
     Route: 048
  5. NUVIGIL [Concomitant]
     Route: 048
  6. VITAMIN D3 [Concomitant]
     Route: 048
  7. VITAMIN B12 [Concomitant]
     Route: 048

REACTIONS (3)
  - Fatigue [Unknown]
  - Abdominal distension [Unknown]
  - Hot flush [Not Recovered/Not Resolved]
